FAERS Safety Report 23500673 (Version 1)
Quarter: 2024Q1

REPORT INFORMATION
  Report Type: Spontaneous
  Country: US (occurrence: US)
  Receive Date: 20240208
  Receipt Date: 20240208
  Transmission Date: 20240409
  Serious: No
  Sender: FDA-Public Use
  Company Number: US-BRISTOL-MYERS SQUIBB COMPANY-2024-020584

PATIENT
  Age: 79 Year
  Sex: Female
  Weight: 76.66 kg

DRUGS (1)
  1. REVLIMID [Suspect]
     Active Substance: LENALIDOMIDE
     Indication: Plasma cell myeloma
     Dosage: 21D EVERY 28D
     Route: 048

REACTIONS (2)
  - Rash pruritic [Unknown]
  - Off label use [Unknown]
